FAERS Safety Report 6502440-3 (Version None)
Quarter: 2009Q4

REPORT INFORMATION
  Report Type: 
  Country: None (occurrence: None)
  Receive Date: 20091203
  Receipt Date: 20091202
  Transmission Date: 20100525
  Serious: Yes (Death, Hospitalization)
  Sender: FDA-Public Use
  Company Number: WAES 0811USA00757

PATIENT
  Age: 14 Year
  Sex: Male

DRUGS (1)
  1. COZAAR [Suspect]
     Indication: PROTEINURIA
     Dosage: 50 MG, DAILY; PO
     Route: 048
     Dates: start: 20071219, end: 20081103

REACTIONS (15)
  - ACUTE LYMPHOCYTIC LEUKAEMIA [None]
  - APHASIA [None]
  - ARTHRALGIA [None]
  - DISSEMINATED INTRAVASCULAR COAGULATION [None]
  - DYSPHAGIA [None]
  - HAEMODIALYSIS [None]
  - HEPATIC FAILURE [None]
  - HYPONATRAEMIA [None]
  - MENINGEAL DISORDER [None]
  - MULTI-ORGAN FAILURE [None]
  - PAIN IN EXTREMITY [None]
  - PNEUMONIA [None]
  - PYREXIA [None]
  - RENAL FAILURE ACUTE [None]
  - SYSTEMIC CANDIDA [None]
